FAERS Safety Report 6254268-X (Version None)
Quarter: 2009Q3

REPORT INFORMATION
  Report Type: 
  Country: None (occurrence: None)
  Receive Date: 20090702
  Receipt Date: 20090623
  Transmission Date: 20100115
  Serious: Yes (Life-Threatening, Hospitalization)
  Sender: FDA-Public Use
  Company Number: GB-JNJFOC-20090608387

PATIENT
  Sex: Female
  Weight: 22 kg

DRUGS (6)
  1. REMICADE [Suspect]
     Indication: CROHN'S DISEASE
     Route: 042
  2. HYDROCORTISONE [Suspect]
     Indication: CROHN'S DISEASE
     Route: 042
  3. AMOXICILLIN [Concomitant]
     Indication: SEPSIS
     Route: 042
  4. ENOXAPARIN SODIUM [Concomitant]
     Indication: SEPSIS
     Route: 058
  5. GENTAMICIN [Concomitant]
     Route: 042
  6. GENTAMICIN [Concomitant]
     Indication: SEPSIS
     Route: 042

REACTIONS (4)
  - COLECTOMY [None]
  - HYPERTENSION [None]
  - HYPOKALAEMIA [None]
  - REVERSIBLE POSTERIOR LEUKOENCEPHALOPATHY SYNDROME [None]
